FAERS Safety Report 8877011 (Version 2)
Quarter: 2013Q2

REPORT INFORMATION
  Report Type: Spontaneous
  Country: US (occurrence: None)
  Receive Date: 20120426
  Receipt Date: 20120703
  Transmission Date: 20140414
  Serious: Yes (Other)
  Sender: FDA-Public Use
  Company Number: PHEH2012US002939

PATIENT
  Age: 59 Year
  Sex: Female
  Weight: 62.6 kg

DRUGS (6)
  1. GILENYA [Suspect]
     Indication: MULTIPLE SCLEROSIS
     Route: 048
     Dates: start: 20121111
  2. ESTRACE (ESTRADIOL) [Concomitant]
     Indication: MULTIPLE SCLEROSIS
     Route: 048
     Dates: start: 20111111
  3. NORTRIPTYLINE (NORTRIPTYLINE) [Concomitant]
  4. PREVACID (LANSOPRAZOLE) [Concomitant]
  5. DAYPRO (OXAPROZIN) [Concomitant]
  6. HCTZ (HYDROCHLOROTHIAZIDE) [Concomitant]

REACTIONS (6)
  - Multiple sclerosis relapse [None]
  - Pigmentation disorder [None]
  - Nausea [None]
  - Pruritus [None]
  - Fatigue [None]
  - Gait disturbance [None]
